FAERS Safety Report 10506165 (Version 1)
Quarter: 2014Q4

REPORT INFORMATION
  Report Type: Report from Study
  Country: SE (occurrence: SE)
  Receive Date: 20141009
  Receipt Date: 20141009
  Transmission Date: 20150528
  Serious: Yes (Other)
  Sender: FDA-Public Use
  Company Number: SE-ROCHE-1470711

PATIENT

DRUGS (4)
  1. HERCEPTIN [Suspect]
     Active Substance: TRASTUZUMAB
     Indication: METASTATIC NEOPLASM
     Route: 058
  2. HERCEPTIN [Concomitant]
     Active Substance: TRASTUZUMAB
     Indication: METASTATIC NEOPLASM
     Route: 042
  3. LAPATINIB [Concomitant]
     Active Substance: LAPATINIB
     Indication: METASTATIC NEOPLASM
  4. XELODA [Concomitant]
     Active Substance: CAPECITABINE
     Indication: METASTATIC NEOPLASM
     Route: 065

REACTIONS (1)
  - Disease progression [Unknown]
